FAERS Safety Report 9558833 (Version 3)
Quarter: 2013Q4

REPORT INFORMATION
  Report Type: Report from Study
  Country: FR (occurrence: FR)
  Receive Date: 20130926
  Receipt Date: 20131010
  Transmission Date: 20140711
  Serious: No
  Sender: FDA-Public Use
  Company Number: PHHY2013FR080229

PATIENT
  Age: 72 Year
  Sex: Male

DRUGS (11)
  1. AMN107 [Suspect]
     Indication: CHRONIC MYELOID LEUKAEMIA
     Dosage: 400 MG, DAILY
     Route: 048
     Dates: start: 20110502
  2. KARDEGIC [Concomitant]
     Indication: CARDIOMYOPATHY
     Dosage: 160 MG, DAILY
  3. LOXEN [Concomitant]
     Indication: HYPERTENSION
  4. COVERSYL                                /BEL/ [Concomitant]
     Indication: HYPERTENSION
     Dosage: 8 MG/JOUR
  5. TAHOR [Concomitant]
     Indication: HYPERCHOLESTEROLAEMIA
  6. ALLOPURINOL [Concomitant]
     Indication: HYPERURICAEMIA
     Dosage: 100 MG/J
  7. DIFFU-K [Concomitant]
     Indication: HYPOKALAEMIA
  8. JOSIR [Concomitant]
     Indication: PROSTATIC ADENOMA
  9. PIASCLEDINE                        /01305801/ [Concomitant]
     Indication: OSTEOARTHRITIS
  10. CARBOSYLANE                        /00814601/ [Concomitant]
     Indication: ABDOMINAL DISTENSION
  11. METEOSPASMYL [Concomitant]
     Indication: ABDOMINAL PAIN

REACTIONS (1)
  - Lipase increased [Recovered/Resolved]
